FAERS Safety Report 7625346-5 (Version None)
Quarter: 2011Q3

REPORT INFORMATION
  Report Type: 
  Country: None (occurrence: None)
  Receive Date: 20110701
  Receipt Date: 20100614
  Transmission Date: 20111222
  Serious: Yes (Other)
  Sender: FDA-Public Use
  Company Number: 7008109

PATIENT
  Age: 41 Year
  Sex: Female

DRUGS (3)
  1. REBIF [Suspect]
     Indication: PRODUCT USED FOR UNKNOWN INDICATION
     Dosage: 44 MCG
     Dates: start: 20100401, end: 20100501
  2. REBIF [Suspect]
     Indication: PRODUCT USED FOR UNKNOWN INDICATION
     Dosage: 44 MCG
     Dates: start: 20100501, end: 20100101
  3. SEIZURE MEDICATION (ANTIEPILEPTICS) [Concomitant]

REACTIONS (1)
  - CONVULSION [None]
